FAERS Safety Report 9416784 (Version 1)
Quarter: 2013Q3

REPORT INFORMATION
  Report Type: Spontaneous
  Country: US (occurrence: US)
  Receive Date: 20130724
  Receipt Date: 20130724
  Transmission Date: 20140515
  Serious: No
  Sender: FDA-Public Use
  Company Number: US-GALDERMA-US13000521

PATIENT
  Age: 58 Year
  Sex: Male
  Weight: 79 kg

DRUGS (4)
  1. ORACEA (DOXYCYCLINE, USP) CAPSULES 40 MG [Suspect]
     Indication: ROSACEA
     Route: 048
     Dates: start: 201208
  2. DYAZIDE [Concomitant]
     Indication: INNER EAR DISORDER
     Route: 048
     Dates: start: 2007
  3. SYNTHROID [Concomitant]
     Indication: HYPOTHYROIDISM
     Route: 048
     Dates: start: 2007
  4. NON STEROIDAL NASAL SPRAY [Concomitant]
     Indication: SINUSITIS
     Route: 045

REACTIONS (4)
  - Narrow anterior chamber angle [Not Recovered/Not Resolved]
  - Vision blurred [Not Recovered/Not Resolved]
  - Cataract [Not Recovered/Not Resolved]
  - Vitreous floaters [Not Recovered/Not Resolved]
